FAERS Safety Report 9841324 (Version 1)
Quarter: 2014Q1

REPORT INFORMATION
  Report Type: Report from Study
  Country: KR (occurrence: KR)
  Receive Date: 20140124
  Receipt Date: 20140124
  Transmission Date: 20141002
  Serious: Yes (Hospitalization)
  Sender: FDA-Public Use
  Company Number: KR-JNJFOC-20140109960

PATIENT
  Age: 13 Year
  Sex: Male
  Weight: 49.3 kg

DRUGS (11)
  1. REMICADE [Suspect]
     Indication: COLITIS ULCERATIVE
     Route: 042
     Dates: start: 20140110
  2. REMICADE [Suspect]
     Indication: COLITIS ULCERATIVE
     Route: 042
     Dates: start: 20131216
  3. ASACOL [Concomitant]
     Indication: CROHN^S DISEASE
     Route: 048
     Dates: start: 20130914
  4. CENTRUM (MINERALS NOS, VITAMINS NOS) [Concomitant]
     Indication: VITAMIN SUPPLEMENTATION
     Route: 048
     Dates: start: 20131127
  5. BOLGRE [Concomitant]
     Indication: ANAEMIA PROPHYLAXIS
     Route: 048
     Dates: start: 20130924
  6. KLARICID [Concomitant]
     Indication: COUGH
     Route: 048
     Dates: start: 20131216, end: 20131220
  7. ZADITEN [Concomitant]
     Indication: COUGH
     Route: 048
     Dates: start: 20131216, end: 20131220
  8. PENIRAMIN [Concomitant]
     Indication: ANTIALLERGIC THERAPY
     Route: 042
     Dates: start: 20131216, end: 20131216
  9. PENIRAMIN [Concomitant]
     Indication: ANTIALLERGIC THERAPY
     Route: 042
     Dates: start: 20140110, end: 20140110
  10. TRAMADOL [Concomitant]
     Indication: ANALGESIC THERAPY
     Route: 048
     Dates: start: 20140110, end: 20140110
  11. LACIDOFIL [Concomitant]
     Route: 048
     Dates: start: 20140109, end: 20140113

REACTIONS (1)
  - Colitis ulcerative [Recovered/Resolved]
